FAERS Safety Report 12837734 (Version 1)
Quarter: 2016Q4

REPORT INFORMATION
  Report Type: Spontaneous
  Country: BE (occurrence: BE)
  Receive Date: 20161012
  Receipt Date: 20161012
  Transmission Date: 20170207
  Serious: Yes (Other)
  Sender: FDA-Public Use
  Company Number: BE-ROCHE-1840696

PATIENT
  Age: 67 Year
  Sex: Female
  Weight: 74 kg

DRUGS (8)
  1. TAXOTERE [Concomitant]
     Active Substance: DOCETAXEL
     Route: 042
     Dates: start: 20160128
  2. HERCEPTIN [Concomitant]
     Active Substance: TRASTUZUMAB
     Route: 042
     Dates: start: 20160128
  3. TOPAMAX [Concomitant]
     Active Substance: TOPIRAMATE
     Route: 048
  4. PERJETA [Suspect]
     Active Substance: PERTUZUMAB
     Indication: BREAST CANCER METASTATIC
     Route: 042
     Dates: start: 20160128
  5. OMEPRAZOLE. [Concomitant]
     Active Substance: OMEPRAZOLE
     Route: 048
  6. PAROXETINE. [Concomitant]
     Active Substance: PAROXETINE
     Route: 048
  7. DEXAMETHASONE. [Concomitant]
     Active Substance: DEXAMETHASONE
     Route: 048
     Dates: start: 20160330, end: 20160331
  8. ASPIRINE [Concomitant]
     Active Substance: ASPIRIN
     Dosage: IF NEEDED
     Route: 048

REACTIONS (2)
  - Anaphylactic shock [Recovered/Resolved]
  - Hypersensitivity [Recovered/Resolved]

NARRATIVE: CASE EVENT DATE: 20160331
